FAERS Safety Report 13656675 (Version 1)
Quarter: 2017Q2

REPORT INFORMATION
  Report Type: Spontaneous
  Country: US (occurrence: US)
  Receive Date: 20170615
  Receipt Date: 20170615
  Transmission Date: 20170830
  Serious: Yes (Other)
  Sender: FDA-Public Use
  Company Number: US-APOPHARMA USA, INC.-2017AP012675

PATIENT
  Sex: Male
  Weight: 8.29 kg

DRUGS (7)
  1. HEPARIN [Concomitant]
     Active Substance: HEPARIN SODIUM
     Indication: ANTICOAGULANT THERAPY
     Dosage: UNK IU/KG, UNKNOWN
     Route: 042
  2. ALKERAN [Suspect]
     Active Substance: MELPHALAN
     Indication: RETINOBLASTOMA
     Dosage: UNK UNK, OTHER
     Route: 013
  3. AFRIN [Concomitant]
     Active Substance: OXYMETAZOLINE
     Indication: VASOCONSTRICTION
     Dosage: UNK, UNKNOWN
     Route: 045
  4. CARBOPLATIN. [Concomitant]
     Active Substance: CARBOPLATIN
     Indication: RETINOBLASTOMA
     Dosage: UNK, OTHER
     Route: 013
  5. PHENYLEPHRINE [Concomitant]
     Active Substance: PHENYLEPHRINE\PHENYLEPHRINE HYDROCHLORIDE
     Indication: VASOCONSTRICTION
     Dosage: UNK, UNKNOWN
     Route: 061
  6. NITROGLYCERIN. [Concomitant]
     Active Substance: NITROGLYCERIN
     Indication: VASOSPASM
     Dosage: UNK MG, UNKNOWN
     Route: 065
  7. TOPOTECAN [Concomitant]
     Active Substance: TOPOTECAN HYDROCHLORIDE
     Indication: RETINOBLASTOMA
     Dosage: UNK, OTHER
     Route: 013

REACTIONS (3)
  - Neutropenia [Unknown]
  - Hypotension [Recovered/Resolved]
  - Bronchospasm [Recovered/Resolved]
